FAERS Safety Report 5668355-8 (Version None)
Quarter: 2008Q1

REPORT INFORMATION
  Report Type: 
  Country: None (occurrence: None)
  Receive Date: 20080315
  Receipt Date: 20080222
  Transmission Date: 20080703
  Serious: No
  Sender: FDA-Public Use
  Company Number: US-ABBOTT-08P-163-0439734-00

PATIENT
  Sex: Female
  Weight: 52.21 kg

DRUGS (2)
  1. HUMIRA [Suspect]
     Indication: RHEUMATOID ARTHRITIS
     Dates: start: 20070201, end: 20080101
  2. HUMIRA [Suspect]

REACTIONS (3)
  - NASOPHARYNGITIS [None]
  - RASH ERYTHEMATOUS [None]
  - RASH PRURITIC [None]
